FAERS Safety Report 8787327 (Version 1)
Quarter: 2012Q4

REPORT INFORMATION
  Report Type: 
  Country: US (occurrence: US)
  Receive Date: 20120914
  Receipt Date: 20120914
  Transmission Date: 20130627
  Serious: No
  Sender: FDA-Public Use
  Company Number: US-VERTEX PHARMACEUTICAL INC.-AE-2012-010984

PATIENT
  Sex: Female

DRUGS (3)
  1. INCIVEK [Suspect]
     Indication: HEPATITIS C
     Route: 048
     Dates: start: 201204, end: 201207
  2. PEGASYS [Concomitant]
     Indication: HEPATITIS C
     Dates: start: 201204
  3. RIBAVIRIN [Concomitant]
     Indication: HEPATITIS C
     Dates: start: 201204

REACTIONS (2)
  - White blood cell count decreased [Unknown]
  - Rash [Unknown]
